FAERS Safety Report 22314842 (Version 3)
Quarter: 2023Q2

REPORT INFORMATION
  Report Type: Spontaneous
  Country: US (occurrence: US)
  Receive Date: 20230512
  Receipt Date: 20230626
  Transmission Date: 20230722
  Serious: Yes (Hospitalization, Other)
  Sender: FDA-Public Use
  Company Number: US-PFIZER INC-PV202300083759

PATIENT
  Age: 70 Year
  Sex: Male
  Weight: 107.94 kg

DRUGS (1)
  1. TIKOSYN [Suspect]
     Active Substance: DOFETILIDE
     Indication: Atrial fibrillation
     Dosage: 1000 MG, DAILY
     Route: 048

REACTIONS (6)
  - Illness [Unknown]
  - Drug ineffective [Unknown]
  - Condition aggravated [Unknown]
  - Weight decreased [Unknown]
  - Mobility decreased [Unknown]
  - Product prescribing error [Unknown]
